APPROVED DRUG PRODUCT: TERAZOSIN HYDROCHLORIDE
Active Ingredient: TERAZOSIN HYDROCHLORIDE
Strength: EQ 10MG BASE
Dosage Form/Route: CAPSULE;ORAL
Application: A075384 | Product #004
Applicant: PHARMOBEDIENT CONSULTING LLC
Approved: Dec 1, 2000 | RLD: No | RS: No | Type: DISCN